FAERS Safety Report 11891230 (Version 1)
Quarter: 2016Q1

REPORT INFORMATION
  Report Type: Spontaneous
  Country: US (occurrence: US)
  Receive Date: 20160106
  Receipt Date: 20160106
  Transmission Date: 20160526
  Serious: Yes (Other)
  Sender: FDA-Public Use
  Company Number: US-ASTRAZENECA-2016SE01014

PATIENT
  Age: 73 Year
  Sex: Male
  Weight: 74.4 kg

DRUGS (9)
  1. CRESTOR [Suspect]
     Active Substance: ROSUVASTATIN CALCIUM
     Indication: BLOOD CHOLESTEROL DECREASED
     Route: 048
     Dates: start: 2009
  2. NIACIN. [Concomitant]
     Active Substance: NIACIN
  3. NIACIN. [Concomitant]
     Active Substance: NIACIN
     Dosage: SLO-NIACIN OTC, 1 PILL FOR THE LAST 6 TO 8 MONTHS
  4. SERTRALINE [Concomitant]
     Active Substance: SERTRALINE HYDROCHLORIDE
     Indication: DEPRESSION
     Route: 048
     Dates: start: 1997
  5. RAMIPRIL. [Concomitant]
     Active Substance: RAMIPRIL
     Indication: BLOOD PRESSURE ABNORMAL
     Route: 048
     Dates: start: 2000
  6. NIACIN. [Concomitant]
     Active Substance: NIACIN
     Dates: start: 2014
  7. BABY ASPIRIN [Concomitant]
     Active Substance: ASPIRIN
     Indication: ANTICOAGULANT THERAPY
     Dosage: 81 UNK
     Route: 048
     Dates: start: 1995
  8. ZETIA [Concomitant]
     Active Substance: EZETIMIBE
     Indication: BLOOD CHOLESTEROL DECREASED
     Route: 048
     Dates: start: 1997
  9. SERTRALINE [Concomitant]
     Active Substance: SERTRALINE HYDROCHLORIDE
     Indication: ANXIETY
     Route: 048
     Dates: start: 1997

REACTIONS (2)
  - Renal failure [Unknown]
  - Hot flush [Recovered/Resolved]

NARRATIVE: CASE EVENT DATE: 2015
